FAERS Safety Report 6889534-8 (Version None)
Quarter: 2010Q3

REPORT INFORMATION
  Report Type: 
  Country: None (occurrence: None)
  Receive Date: 20100730
  Receipt Date: 20080317
  Transmission Date: 20110219
  Serious: Yes (Other)
  Sender: FDA-Public Use
  Company Number: US-PFIZER INC-2008021837

PATIENT
  Sex: Female
  Weight: 62.6 kg

DRUGS (7)
  1. LIPITOR [Suspect]
     Indication: BLOOD CHOLESTEROL INCREASED
     Route: 048
     Dates: start: 20040101
  2. ANTIHISTAMINES [Concomitant]
  3. PROPAFENONE [Concomitant]
  4. WARFARIN SODIUM [Concomitant]
  5. OMEGA-3 MARINE TRIGLYCERIDES [Concomitant]
  6. AVAPRO [Concomitant]
  7. DIGITEK [Concomitant]

REACTIONS (5)
  - ATRIAL FIBRILLATION [None]
  - CONSTIPATION [None]
  - INSOMNIA [None]
  - OEDEMA PERIPHERAL [None]
  - VEIN PAIN [None]
